FAERS Safety Report 11810016 (Version 1)
Quarter: 2015Q4

REPORT INFORMATION
  Report Type: Spontaneous
  Country: US (occurrence: US)
  Receive Date: 20151208
  Receipt Date: 20151208
  Transmission Date: 20160305
  Serious: No
  Sender: FDA-Public Use
  Company Number: US-ASTRAZENECA-2015SF12668

PATIENT
  Sex: Male
  Weight: 98.4 kg

DRUGS (6)
  1. DULCOLAX NOS [Concomitant]
     Active Substance: BISACODYL OR DOCUSATE SODIUM
     Indication: CONSTIPATION
  2. ASPIRIN. [Concomitant]
     Active Substance: ASPIRIN
  3. BYDUREON [Suspect]
     Active Substance: EXENATIDE
     Indication: TYPE 2 DIABETES MELLITUS
     Route: 058
     Dates: start: 201507
  4. TELMISARTAN. [Concomitant]
     Active Substance: TELMISARTAN
     Indication: BLOOD PRESSURE ABNORMAL
  5. AMLODIPINE [Concomitant]
     Active Substance: AMLODIPINE BESYLATE
     Indication: BLOOD PRESSURE ABNORMAL
  6. PIOGLITAZONE. [Concomitant]
     Active Substance: PIOGLITAZONE
     Indication: TYPE 2 DIABETES MELLITUS

REACTIONS (2)
  - Constipation [Recovering/Resolving]
  - Weight decreased [Unknown]
